FAERS Safety Report 8936883 (Version 2)
Quarter: 2013Q1

REPORT INFORMATION
  Report Type: Spontaneous
  Country: US (occurrence: US)
  Receive Date: 20121130
  Receipt Date: 20130205
  Transmission Date: 20140127
  Serious: Yes (Other)
  Sender: FDA-Public Use
  Company Number: PHEH2012US023340

PATIENT
  Age: 55 Year
  Sex: Female

DRUGS (6)
  1. GILENYA [Suspect]
     Indication: MULTIPLE SCLEROSIS
     Dosage: 0.5 MG, QD
     Route: 048
     Dates: start: 20111214, end: 20120912
  2. MULTIVITAMINS [Concomitant]
  3. OMEGA 3 FISH OIL [Concomitant]
     Route: 048
  4. COENZYME Q10 [Concomitant]
     Route: 048
  5. VITAMIN D [Concomitant]
     Route: 048
  6. CALCIUM [Concomitant]
     Route: 048

REACTIONS (1)
  - Macular oedema [Recovering/Resolving]
